FAERS Safety Report 16665129 (Version 1)
Quarter: 2019Q3

REPORT INFORMATION
  Report Type: Report from Study
  Country: IT (occurrence: IT)
  Receive Date: 20190803
  Receipt Date: 20190803
  Transmission Date: 20191004
  Serious: Yes (Hospitalization)
  Sender: FDA-Public Use
  Company Number: IT-ACCORD-149965

PATIENT
  Age: 63 Year
  Sex: Male

DRUGS (3)
  1. DOCETAXEL ACCORD HEALTHCARE [Concomitant]
     Active Substance: DOCETAXEL
     Dates: start: 20190411, end: 20190411
  2. FLUOROURACIL AHCL [Concomitant]
     Active Substance: FLUOROURACIL
     Dates: start: 20190411, end: 20190411
  3. CISPLATIN ACCORD HEALTHCARE ITALY [Suspect]
     Active Substance: CISPLATIN
     Indication: HYPOPHARYNGEAL CANCER
     Route: 042
     Dates: start: 20190411, end: 20190411

REACTIONS (4)
  - Anuria [Recovered/Resolved]
  - Hyponatraemia [Recovered/Resolved]
  - Off label use [Unknown]
  - Acute kidney injury [Recovered/Resolved]

NARRATIVE: CASE EVENT DATE: 20190424
